FAERS Safety Report 4931422-8 (Version None)
Quarter: 2006Q1

REPORT INFORMATION
  Report Type: 
  Country: None (occurrence: None)
  Receive Date: 20060228
  Receipt Date: 20060217
  Transmission Date: 20060701
  Serious: Yes (Hospitalization, Other)
  Sender: FDA-Public Use
  Company Number: 2006024847

PATIENT
  Age: 79 Year
  Sex: Female
  Weight: 81.6475 kg

DRUGS (4)
  1. CELEBREX [Suspect]
     Indication: ARTHRITIS
     Dosage: 200 MG (200 MG, 1 IN 1 D), ORAL
     Route: 048
     Dates: end: 20050701
  2. SYNTHROID [Concomitant]
  3. DIURETICS (DIURETICS) [Concomitant]
  4. PRAVACHOL [Concomitant]

REACTIONS (2)
  - HEART RATE IRREGULAR [None]
  - PULMONARY THROMBOSIS [None]
